FAERS Safety Report 8837720 (Version 3)
Quarter: 2013Q4

REPORT INFORMATION
  Report Type: Report from Study
  Country: JP (occurrence: JP)
  Receive Date: 20121012
  Receipt Date: 20131224
  Transmission Date: 20140711
  Serious: Yes (Hospitalization)
  Sender: FDA-Public Use
  Company Number: JP-ALLERGAN-1213733US

PATIENT
  Age: 82 Year
  Sex: Female

DRUGS (4)
  1. BIMATOPROST 0.03% SOL-EYE (9106X) [Suspect]
     Indication: NORMAL TENSION GLAUCOMA
     Dosage: 1 DROP IN EACH EYE, ONCE AT NIGHT
     Route: 047
     Dates: start: 20111028
  2. LACRIMIN [Concomitant]
     Dosage: UNK
     Route: 047
     Dates: start: 20031204
  3. SODIUM VALPROATE [Concomitant]
     Dosage: UNK
     Route: 048
     Dates: start: 20111113
  4. CLONAZEPAM [Concomitant]
     Dosage: UNK
     Route: 048

REACTIONS (2)
  - Epilepsy [Recovered/Resolved]
  - Blepharal pigmentation [Not Recovered/Not Resolved]
